FAERS Safety Report 16933250 (Version 1)
Quarter: 2019Q4

REPORT INFORMATION
  Report Type: Spontaneous
  Country: JP (occurrence: JP)
  Receive Date: 20191018
  Receipt Date: 20191018
  Transmission Date: 20200122
  Serious: Yes (Other)
  Sender: FDA-Public Use
  Company Number: JP-GLAXOSMITHKLINE-JP2019JPN187167

PATIENT
  Age: 77 Year
  Sex: Female

DRUGS (10)
  1. CALONAL TABLET [Concomitant]
     Dosage: 500 MG, PRN
     Dates: start: 20190918, end: 20190924
  2. STADERM OINTMENT [Concomitant]
     Dosage: UNK, BID
     Dates: start: 20190918, end: 20190924
  3. REBAMIPIDE TABLETS [Concomitant]
     Dosage: 1 DF, PRN
     Dates: start: 20190918, end: 20190924
  4. AMLODIPINE BESILATE TABLET [Concomitant]
     Active Substance: AMLODIPINE BESYLATE
     Dosage: 2.5 MG, 1D
  5. ROSUVASTATIN CALCIUM TABLETS [Concomitant]
     Active Substance: ROSUVASTATIN CALCIUM
     Dosage: 2.5 MG, 1D
  6. VALACICLOVIR HYDROCHLORIDE [Suspect]
     Active Substance: VALACYCLOVIR HYDROCHLORIDE
     Indication: HERPES ZOSTER
     Dosage: 1000 MG, TID
     Route: 048
     Dates: start: 20190918, end: 20190924
  7. VALSARTAN TABLETS [Concomitant]
     Active Substance: VALSARTAN
     Dosage: 40 MG, UNK
  8. TARLIGE [Concomitant]
     Active Substance: MIROGABALIN BESYLATE
     Dosage: 5 MG, BID, AFTER BREAKFAST AND DINNER
     Dates: start: 20190920, end: 20190923
  9. NEXIUM CAPSULE [Concomitant]
     Dosage: 20 MG, 1D
  10. MECOBALAMIN TABLETS [Concomitant]
     Active Substance: METHYLCOBALAMIN
     Dosage: 500 MG, TID, AFTER MEALS
     Dates: start: 20190918, end: 20190924

REACTIONS (2)
  - Dysuria [Recovered/Resolved]
  - Headache [Recovered/Resolved]

NARRATIVE: CASE EVENT DATE: 20190923
